FAERS Safety Report 17155842 (Version 3)
Quarter: 2020Q1

REPORT INFORMATION
  Report Type: Spontaneous
  Country: BR (occurrence: BR)
  Receive Date: 20191215
  Receipt Date: 20200313
  Transmission Date: 20200409
  Serious: Yes (Other)
  Sender: FDA-Public Use
  Company Number: BR-SA-2019SA334286

PATIENT
  Sex: Female

DRUGS (2)
  1. ALLEGRA-D [Suspect]
     Active Substance: FEXOFENADINE\PSEUDOEPHEDRINE
     Indication: RHINITIS ALLERGIC
     Dosage: UNK
     Route: 065
  2. AMOXICILLIN. [Suspect]
     Active Substance: AMOXICILLIN
     Dosage: UNK
     Route: 065

REACTIONS (17)
  - Drowning [Unknown]
  - Cough [Not Recovered/Not Resolved]
  - Fatigue [Not Recovered/Not Resolved]
  - Back pain [Unknown]
  - Condition aggravated [Recovered/Resolved]
  - White blood cell count increased [Unknown]
  - Product residue present [Unknown]
  - Urinary tract infection [Recovering/Resolving]
  - Drug resistance [Unknown]
  - Drug ineffective [Unknown]
  - Dyspnoea [Unknown]
  - Pneumonitis [Unknown]
  - Pneumonia [Recovered/Resolved]
  - Asthenia [Recovering/Resolving]
  - Rhinitis allergic [Unknown]
  - Infection [Unknown]
  - Pulmonary pain [Not Recovered/Not Resolved]
